FAERS Safety Report 19512481 (Version 2)
Quarter: 2021Q3

REPORT INFORMATION
  Report Type: Report from Study
  Country: CA (occurrence: CA)
  Receive Date: 20210709
  Receipt Date: 20210713
  Transmission Date: 20211014
  Serious: Yes (Death, Other)
  Sender: FDA-Public Use
  Company Number: CA-ASTRAZENECA-2021A602595

PATIENT
  Sex: Female

DRUGS (1)
  1. CALQUENCE [Suspect]
     Active Substance: ACALABRUTINIB
     Indication: CHRONIC LYMPHOCYTIC LEUKAEMIA
     Route: 048
     Dates: start: 20210108, end: 20210620

REACTIONS (5)
  - Chronic hepatic failure [Unknown]
  - Hepatic cirrhosis [Fatal]
  - Fall [Fatal]
  - Ascites [Unknown]
  - Malignant neoplasm progression [Unknown]
